FAERS Safety Report 9763853 (Version 1)
Quarter: 2013Q4

REPORT INFORMATION
  Report Type: Spontaneous
  Country: US (occurrence: US)
  Receive Date: 20131216
  Receipt Date: 20131216
  Transmission Date: 20140711
  Serious: No
  Sender: FDA-Public Use
  Company Number: US-BIOGENIDEC-2013BI115207

PATIENT
  Age: 44 Year
  Sex: Female

DRUGS (6)
  1. TECFIDERA [Suspect]
     Indication: MULTIPLE SCLEROSIS
     Route: 048
     Dates: start: 20131121
  2. LEVOTHYROXINE [Concomitant]
  3. CELEXA [Concomitant]
  4. PROVIGIL [Concomitant]
  5. AMPYRA [Concomitant]
  6. VIT D3 [Concomitant]

REACTIONS (3)
  - Accidental overdose [Unknown]
  - Flushing [Unknown]
  - Pruritus [Unknown]
